FAERS Safety Report 13825764 (Version 1)
Quarter: 2017Q3

REPORT INFORMATION
  Report Type: Spontaneous
  Country: CA (occurrence: CA)
  Receive Date: 20170802
  Receipt Date: 20170802
  Transmission Date: 20171127
  Serious: Yes (Disabling)
  Sender: FDA-Public Use
  Company Number: CA-ACTELION-A-US2017-156247

PATIENT
  Age: 33 Year
  Sex: Female

DRUGS (2)
  1. ZAVESCA [Suspect]
     Active Substance: MIGLUSTAT
     Indication: NIEMANN-PICK DISEASE
     Dosage: 200 MG, TID
     Route: 048
     Dates: start: 201104
  2. VORINOSTAT [Concomitant]
     Active Substance: VORINOSTAT
     Dosage: 400 MG, QD
     Dates: start: 201510, end: 201604

REACTIONS (4)
  - Psychotic disorder [Not Recovered/Not Resolved]
  - Hypomania [Not Recovered/Not Resolved]
  - Delusion [Not Recovered/Not Resolved]
  - Thinking abnormal [Not Recovered/Not Resolved]

NARRATIVE: CASE EVENT DATE: 20161114
